FAERS Safety Report 13495340 (Version 2)
Quarter: 2017Q2

REPORT INFORMATION
  Report Type: Spontaneous
  Country: GB (occurrence: GB)
  Receive Date: 20170428
  Receipt Date: 20170602
  Transmission Date: 20170830
  Serious: Yes (Hospitalization, Other)
  Sender: FDA-Public Use
  Company Number: GB-ASTELLAS-2017US015647

PATIENT
  Age: 26 Year
  Sex: Female

DRUGS (5)
  1. MULTIVITAMIN                       /00097801/ [Concomitant]
     Active Substance: VITAMINS
     Indication: PRODUCT USED FOR UNKNOWN INDICATION
     Dosage: UNK, UNKNOWN FREQ.
     Route: 065
  2. BETAMETHASONE. [Concomitant]
     Active Substance: BETAMETHASONE
     Indication: MATERNAL THERAPY TO ENHANCE FOETAL LUNG MATURITY
     Dosage: UNK UNK, UNKNOWN FREQ.
     Route: 065
  3. FOLIC ACID. [Concomitant]
     Active Substance: FOLIC ACID
     Indication: PRODUCT USED FOR UNKNOWN INDICATION
     Dosage: UNK, UNKNOWN FREQ.
     Route: 065
  4. COTRIMOXAZOLE [Concomitant]
     Active Substance: SULFAMETHOXAZOLE\TRIMETHOPRIM
     Indication: PRODUCT USED FOR UNKNOWN INDICATION
     Dosage: UNK UNK, UNKNOWN FREQ.
     Route: 065
  5. TACROLIMUS SYSTEMIC [Suspect]
     Active Substance: TACROLIMUS
     Indication: INTESTINAL TRANSPLANT
     Dosage: UNK UNK, UNKNOWN FREQ.
     Route: 060

REACTIONS (22)
  - Acidosis [Unknown]
  - Hyperkalaemia [Unknown]
  - Exposure during pregnancy [Unknown]
  - Deep vein thrombosis postoperative [Unknown]
  - Anaemia [Unknown]
  - Immunosuppressant drug level increased [Unknown]
  - Oral herpes [Unknown]
  - Premature rupture of membranes [Unknown]
  - Vomiting [Unknown]
  - Uterine contractions during pregnancy [Unknown]
  - Fatigue [Unknown]
  - Incorrect route of drug administration [Unknown]
  - Premature delivery [Unknown]
  - Abdominal pain [Unknown]
  - Immunosuppressant drug level decreased [Unknown]
  - Dehydration [Unknown]
  - Nausea [Unknown]
  - Adenovirus infection [Unknown]
  - Off label use [Unknown]
  - Vaginal haemorrhage [Unknown]
  - Abdominal pain lower [Unknown]
  - Acute kidney injury [Unknown]
